FAERS Safety Report 13097340 (Version 1)
Quarter: 2017Q1

REPORT INFORMATION
  Report Type: Spontaneous
  Country: US (occurrence: US)
  Receive Date: 20170109
  Receipt Date: 20170109
  Transmission Date: 20170428
  Serious: No
  Sender: FDA-Public Use
  Company Number: US-GRANULES INDIA LIMITED-1061795

PATIENT
  Age: 61 Year
  Sex: Female
  Weight: 75 kg

DRUGS (2)
  1. METFORMIN HYDROCHLORIDE. [Suspect]
     Active Substance: METFORMIN HYDROCHLORIDE
     Dates: start: 20160603
  2. INSULIN AND LANTIS (AS THERE WERE NO SEPARATE DOSES, CAPTURED IN ONE P [Concomitant]

REACTIONS (5)
  - Drug ineffective [Recovered/Resolved]
  - Chest discomfort [Recovered/Resolved]
  - Medication error [Recovered/Resolved]
  - Discomfort [Recovered/Resolved]
  - Blood glucose decreased [Recovered/Resolved]
